FAERS Safety Report 9258166 (Version 3)
Quarter: 2013Q2

REPORT INFORMATION
  Report Type: Report from Study
  Country: GB (occurrence: GB)
  Receive Date: 20130426
  Receipt Date: 20130606
  Transmission Date: 20140414
  Serious: Yes (Hospitalization, Other)
  Sender: FDA-Public Use
  Company Number: GB-BRISTOL-MYERS SQUIBB COMPANY-18800052

PATIENT
  Age: 65 Year
  Sex: Male
  Weight: 56.6 kg

DRUGS (12)
  1. CISPLATIN [Suspect]
     Indication: NON-SMALL CELL LUNG CANCER
     Dosage: LAST DOSE ON 15-JUN-2011
     Dates: start: 20110420, end: 20110701
  2. GEMCITABINE [Suspect]
     Indication: NON-SMALL CELL LUNG CANCER
     Dosage: LAST DOSE ON 15-JUN-2011
     Route: 065
     Dates: start: 20110420, end: 20110701
  3. LEVOFLOXACIN [Concomitant]
     Indication: UPPER RESPIRATORY TRACT INFECTION
  4. MOVICOL [Concomitant]
  5. LANSOPRAZOLE [Concomitant]
     Indication: PROPHYLAXIS
  6. OXYMORPHONE [Concomitant]
     Indication: CHEST PAIN
  7. CO-CODAMOL [Concomitant]
     Indication: PAIN
  8. DALTEPARIN [Concomitant]
     Indication: PROPHYLAXIS
  9. CITALOPRAM [Concomitant]
     Indication: DEPRESSION
  10. ZOPICLONE [Concomitant]
     Indication: POOR QUALITY SLEEP
  11. NICOTINE [Concomitant]
  12. ZOMORPH [Concomitant]
     Indication: PAIN

REACTIONS (3)
  - Atrial fibrillation [Recovering/Resolving]
  - Confusional state [Unknown]
  - Anaemia [Recovering/Resolving]
